FAERS Safety Report 23406078 (Version 1)
Quarter: 2024Q1

REPORT INFORMATION
  Report Type: Spontaneous
  Country: US (occurrence: None)
  Receive Date: 20240114
  Receipt Date: 20240114
  Transmission Date: 20240409
  Serious: Yes (Other)
  Sender: FDA-Public Use
  Company Number: None

PATIENT
  Sex: 0

DRUGS (18)
  1. CEFAZOLIN [Suspect]
     Active Substance: CEFAZOLIN
     Indication: Antibiotic prophylaxis
     Dosage: 2 G GRAM ONCE INTRAVENOUS?
     Route: 042
     Dates: start: 20231229, end: 20231229
  2. NORMOSOL R [Concomitant]
     Dates: start: 20231229, end: 20231229
  3. MIDAZOLAM [Concomitant]
     Active Substance: MIDAZOLAM
     Dates: start: 20231229, end: 20231229
  4. PROPOFOL [Concomitant]
     Active Substance: PROPOFOL
     Dates: start: 20231229, end: 20231229
  5. ROCURONIUM [Concomitant]
     Active Substance: ROCURONIUM BROMIDE
     Dates: start: 20231229, end: 20231229
  6. FENTANYL [Concomitant]
     Active Substance: FENTANYL\FENTANYL CITRATE
     Dates: start: 20231229, end: 20231230
  7. KETAMINE [Concomitant]
     Active Substance: KETAMINE
     Dates: start: 20231229, end: 20231229
  8. TRANEXAMIC ACID [Concomitant]
     Active Substance: TRANEXAMIC ACID
     Dates: start: 20231229, end: 20231229
  9. ALBUMIN HUMAN [Concomitant]
     Active Substance: ALBUMIN HUMAN
     Dates: start: 20231229, end: 20231229
  10. HEPARIN SODIUM [Concomitant]
     Active Substance: HEPARIN SODIUM
     Dates: start: 20231229, end: 20231229
  11. phenylephrine injection [Concomitant]
     Dates: start: 20231229, end: 20231229
  12. CARDIOPLEGIA [Concomitant]
     Dates: start: 20231229, end: 20231229
  13. vancomycin topical [Concomitant]
     Dates: start: 20231229, end: 20231229
  14. THROMBIN [Concomitant]
     Active Substance: THROMBIN
     Dates: start: 20231229, end: 20231229
  15. INSULIN HUMAN [Concomitant]
     Active Substance: INSULIN HUMAN
     Dates: start: 20231229, end: 20231230
  16. NOREPINEPHRINE [Concomitant]
     Active Substance: NOREPINEPHRINE
     Dates: start: 20231229, end: 20231230
  17. CALCIUM CHLORIDE [Concomitant]
     Active Substance: CALCIUM CHLORIDE
     Dates: start: 20231229, end: 20231229
  18. PROTAMINE [Concomitant]
     Active Substance: PROTAMINE
     Dates: start: 20231229, end: 20231229

REACTIONS (1)
  - Urticaria [None]

NARRATIVE: CASE EVENT DATE: 20231229
